FAERS Safety Report 5872327-8 (Version None)
Quarter: 2008Q3

REPORT INFORMATION
  Report Type: 
  Country: None (occurrence: None)
  Receive Date: 20080905
  Receipt Date: 20080826
  Transmission Date: 20090109
  Serious: Yes (Other)
  Sender: FDA-Public Use
  Company Number: US-JNJFOC-20080806249

PATIENT
  Sex: Female

DRUGS (1)
  1. ORTHO-NOVUM 1/50 21 [Suspect]
     Indication: CONTRACEPTION
     Route: 048

REACTIONS (3)
  - FEELING ABNORMAL [None]
  - MOOD SWINGS [None]
  - POST PROCEDURAL COMPLICATION [None]
